FAERS Safety Report 8839660 (Version 2)
Quarter: 2013Q2

REPORT INFORMATION
  Report Type: Report from Study
  Country: BR (occurrence: BR)
  Receive Date: 20121015
  Receipt Date: 20130506
  Transmission Date: 20140414
  Serious: Yes (Hospitalization, Other)
  Sender: FDA-Public Use
  Company Number: PHHY2012BR090386

PATIENT
  Sex: Female

DRUGS (12)
  1. FORASEQ [Suspect]
     Indication: RESPIRATORY DISORDER
     Dosage: 12/400 MCG TWICE DAILY
  2. FORASEQ [Suspect]
     Indication: DYSPNOEA
  3. BUDESONIDE [Concomitant]
     Indication: LUNG DISORDER
     Dosage: 2 DF, DAILY
     Route: 048
  4. LOSARTAN [Concomitant]
     Indication: HYPERTENSION
     Dosage: 2 DF, DAILY
     Route: 048
  5. AAS [Concomitant]
     Indication: THROMBOSIS
     Dosage: 1 DF, DAILY
     Route: 048
  6. PREDNISONE [Concomitant]
     Indication: SYSTEMIC LUPUS ERYTHEMATOSUS
     Dosage: 1 DF, DAILY
     Route: 048
  7. SUSTRATE [Concomitant]
     Indication: CARDIAC DISORDER
     Dosage: 3 DF, DAILY
     Route: 048
  8. SIMVASTATIN [Concomitant]
     Indication: BLOOD CHOLESTEROL
     Dosage: 1 DF, QD
     Route: 048
  9. OMEPRAZOLE [Concomitant]
     Indication: GASTRIC DISORDER
     Dosage: 1 DF, DAILY
     Route: 048
  10. FLUOXETINE [Concomitant]
     Indication: DEPRESSION
     Dosage: 1 DF, DAILY
     Route: 048
  11. RIVOTRIL [Concomitant]
     Indication: SLEEP DISORDER
     Dosage: 1 DF, DAILY
     Route: 048
  12. OSTEOFAR [Concomitant]
     Indication: BONE DISORDER
     Dosage: UNK UKN, QW
     Route: 048

REACTIONS (9)
  - Myocardial infarction [Recovered/Resolved]
  - Pulmonary vasculitis [Unknown]
  - Nosocomial infection [Unknown]
  - Pulmonary embolism [Recovered/Resolved]
  - Lung disorder [Unknown]
  - Pain [Unknown]
  - Dyspnoea [Unknown]
  - Bone pain [Not Recovered/Not Resolved]
  - Influenza [Recovered/Resolved]
